FAERS Safety Report 10181743 (Version 1)
Quarter: 2014Q2

REPORT INFORMATION
  Report Type: Spontaneous
  Country: US (occurrence: US)
  Receive Date: 20140519
  Receipt Date: 20140519
  Transmission Date: 20141212
  Serious: No
  Sender: FDA-Public Use
  Company Number: US-BANPHARM-20142435

PATIENT
  Age: 67 Year
  Sex: Female

DRUGS (5)
  1. IBUPROFEN CAPSULES 200 MG [Suspect]
     Indication: SPINAL PAIN
     Dosage: 4 DF, ONCE A DAY,
     Route: 048
     Dates: start: 20140310
  2. ASPIRIN 81 MG [Concomitant]
  3. IRON SUPPLEMENT [Concomitant]
  4. CALCIUM SUPPLEMENT [Concomitant]
  5. OMEPRAZOLE [Concomitant]

REACTIONS (1)
  - Abdominal pain upper [Recovered/Resolved]
